FAERS Safety Report 5942358-8 (Version None)
Quarter: 2008Q4

REPORT INFORMATION
  Report Type: 
  Country: None (occurrence: None)
  Receive Date: 20081105
  Receipt Date: 20081024
  Transmission Date: 20090506
  Serious: Yes (Hospitalization)
  Sender: FDA-Public Use
  Company Number: FR-B.I. PHARMACEUTICALS,INC./RIDGEFIELD-2008-FF-00678FF

PATIENT
  Sex: Male
  Weight: 78 kg

DRUGS (2)
  1. SIFROL [Suspect]
     Indication: PARKINSON'S DISEASE
     Dosage: 1.08MG
     Route: 048
     Dates: start: 20070901
  2. ART 50 [Concomitant]

REACTIONS (5)
  - CEREBROVASCULAR ACCIDENT [None]
  - HALLUCINATION [None]
  - MIGRAINE [None]
  - VISION BLURRED [None]
  - VISUAL IMPAIRMENT [None]
